FAERS Safety Report 7817919-1 (Version None)
Quarter: 2011Q4

REPORT INFORMATION
  Report Type: 
  Country: None (occurrence: None)
  Receive Date: 20111017
  Receipt Date: 20111011
  Transmission Date: 20120403
  Serious: Yes (Hospitalization)
  Sender: FDA-Public Use
  Company Number: US-GLAXOSMITHKLINE-A0888744A

PATIENT
  Age: 66 Year
  Sex: Male
  Weight: 91.4 kg

DRUGS (5)
  1. ZETIA [Concomitant]
  2. AVANDIA [Suspect]
     Indication: DIABETES MELLITUS
     Dosage: 4MG PER DAY
     Route: 048
     Dates: start: 20011101, end: 20050101
  3. TOPROL-XL [Concomitant]
  4. LOTREL [Concomitant]
  5. NEXIUM [Concomitant]

REACTIONS (2)
  - CORONARY ARTERY OCCLUSION [None]
  - CORONARY ARTERY DISEASE [None]
